FAERS Safety Report 12677022 (Version 1)
Quarter: 2016Q3

REPORT INFORMATION
  Report Type: Spontaneous
  Country: CA (occurrence: CA)
  Receive Date: 20160823
  Receipt Date: 20160823
  Transmission Date: 20161109
  Serious: Yes (Other)
  Sender: FDA-Public Use
  Company Number: CA-ROCHE-1660064

PATIENT
  Sex: Female

DRUGS (21)
  1. METHOTREXATE. [Suspect]
     Active Substance: METHOTREXATE
     Route: 048
     Dates: start: 200910, end: 201205
  2. IBUPROFEN. [Suspect]
     Active Substance: IBUPROFEN
     Indication: ARTHRALGIA
  3. HUMIRA [Suspect]
     Active Substance: ADALIMUMAB
     Route: 065
     Dates: start: 201001, end: 201008
  4. ENBREL [Suspect]
     Active Substance: ETANERCEPT
     Indication: RHEUMATOID ARTHRITIS
     Route: 058
  5. LEFLUNOMIDE. [Suspect]
     Active Substance: LEFLUNOMIDE
     Indication: RHEUMATOID ARTHRITIS
     Route: 065
     Dates: start: 200910, end: 201302
  6. NAPROSYN [Suspect]
     Active Substance: NAPROXEN
     Route: 048
  7. METHOTREXATE. [Suspect]
     Active Substance: METHOTREXATE
     Dosage: EVERY TUESDAY 5 TABLET ONCE A WEEK
     Route: 048
     Dates: start: 20131015
  8. NAPROSYN [Suspect]
     Active Substance: NAPROXEN
     Indication: RHEUMATOID ARTHRITIS
     Dosage: 1 TABLET 2 TIMES DAILY
     Route: 048
     Dates: start: 20140613
  9. ARAVA [Concomitant]
     Active Substance: LEFLUNOMIDE
     Route: 065
     Dates: start: 200910, end: 201302
  10. NAPROSYN [Suspect]
     Active Substance: NAPROXEN
     Dosage: 1 TABLET 2 TIMES DAILY
     Route: 048
     Dates: start: 20140925
  11. NAPROSYN [Suspect]
     Active Substance: NAPROXEN
     Route: 048
     Dates: start: 20130702
  12. RITUXAN [Suspect]
     Active Substance: RITUXIMAB
     Indication: RHEUMATOID ARTHRITIS
     Route: 042
  13. METHOTREXATE. [Suspect]
     Active Substance: METHOTREXATE
     Indication: RHEUMATOID ARTHRITIS
     Dosage: EVERY WEDNESDAY
     Route: 048
     Dates: start: 20140613
  14. HUMIRA [Suspect]
     Active Substance: ADALIMUMAB
     Indication: RHEUMATOID ARTHRITIS
     Route: 058
  15. PARIET [Suspect]
     Active Substance: RABEPRAZOLE SODIUM
     Indication: PRODUCT USED FOR UNKNOWN INDICATION
     Dosage: DELAYED RELEASE
     Route: 048
     Dates: start: 20140613
  16. ACTEMRA [Suspect]
     Active Substance: TOCILIZUMAB
     Indication: PRODUCT USED FOR UNKNOWN INDICATION
     Route: 042
     Dates: start: 201301, end: 201310
  17. METHYLPREDNISOLONE. [Suspect]
     Active Substance: METHYLPREDNISOLONE
     Indication: PRODUCT USED FOR UNKNOWN INDICATION
     Dosage: 40MG V/L ONCE INJECTION 1ML
     Route: 048
     Dates: start: 20140409
  18. FOLIC ACID. [Suspect]
     Active Substance: FOLIC ACID
     Indication: PRODUCT USED FOR UNKNOWN INDICATION
     Dosage: EVERY FRIDAY
     Route: 048
     Dates: start: 20140613
  19. IBUPROFEN. [Suspect]
     Active Substance: IBUPROFEN
     Indication: RHEUMATOID ARTHRITIS
     Dosage: 1 TABLET 3 TIMES DAILY
     Route: 048
     Dates: start: 20140514
  20. PARIET [Suspect]
     Active Substance: RABEPRAZOLE SODIUM
     Route: 048
     Dates: start: 20131015
  21. FOLIC ACID. [Suspect]
     Active Substance: FOLIC ACID
     Dosage: EVERY WEDNESDAY 1 TABLET A WEEK
     Route: 048
     Dates: start: 20131015

REACTIONS (14)
  - Obesity [Unknown]
  - Stress [Unknown]
  - Pneumonia [Unknown]
  - Mouth ulceration [Unknown]
  - Drug ineffective [Unknown]
  - C-reactive protein increased [Unknown]
  - Nasal ulcer [Unknown]
  - Drug hypersensitivity [Unknown]
  - Therapeutic response decreased [Unknown]
  - Erythema [Unknown]
  - Pain [Unknown]
  - Blood alkaline phosphatase increased [Unknown]
  - Condition aggravated [Not Recovered/Not Resolved]
  - Swelling [Unknown]
